FAERS Safety Report 9358096 (Version 2)
Quarter: 2013Q4

REPORT INFORMATION
  Report Type: Spontaneous
  Country: US (occurrence: US)
  Receive Date: 20130620
  Receipt Date: 20131009
  Transmission Date: 20140711
  Serious: No
  Sender: FDA-Public Use
  Company Number: US-PFIZER INC-2013181135

PATIENT
  Age: 48 Year
  Sex: Female
  Weight: 65.3 kg

DRUGS (1)
  1. ESTRING [Suspect]
     Dosage: ^7.5UG/2 MG^, UNK
     Route: 067
     Dates: end: 201306

REACTIONS (1)
  - Abdominal distension [Recovered/Resolved]
